FAERS Safety Report 8611452-5 (Version None)
Quarter: 2012Q3

REPORT INFORMATION
  Report Type: 
  Country: None (occurrence: None)
  Receive Date: 20120806
  Receipt Date: 20120725
  Transmission Date: 20120928
  Serious: Yes (Hospitalization, Other)
  Sender: FDA-Public Use
  Company Number: 2012PROUSA01697

PATIENT
  Age: 72 Year
  Sex: Male
  Weight: 85.3 kg

DRUGS (1)
  1. PROVENGE [Suspect]
     Indication: PROSTATE CANCER METASTATIC
     Dosage: 250 ML, SINGLE, INTRAVENOUS
     Route: 042
     Dates: start: 20120625, end: 20120625

REACTIONS (4)
  - PERICARDIAL EFFUSION [None]
  - NEOPLASM PROGRESSION [None]
  - ADENOCARCINOMA [None]
  - DYSPNOEA [None]
